FAERS Safety Report 22956496 (Version 2)
Quarter: 2023Q4

REPORT INFORMATION
  Report Type: Spontaneous
  Country: US (occurrence: US)
  Receive Date: 20230919
  Receipt Date: 20231020
  Transmission Date: 20240110
  Serious: Yes (Other)
  Sender: FDA-Public Use
  Company Number: US-HIKMA PHARMACEUTICALS-US-H14001-23-65387

PATIENT

DRUGS (3)
  1. CIPROFLOXACIN [Suspect]
     Active Substance: CIPROFLOXACIN
     Indication: Cystitis escherichia
     Dosage: 500 MG TWO PILLS, Q12H
     Route: 048
     Dates: start: 20210417
  2. CIPROFLOXACIN [Suspect]
     Active Substance: CIPROFLOXACIN
     Dosage: 500 MG ONE PILL Q12H
     Route: 048
     Dates: start: 20210418
  3. OMEPRAZOLE [Concomitant]
     Active Substance: OMEPRAZOLE
     Indication: Gastrooesophageal reflux disease
     Dosage: 40 MG
     Route: 065

REACTIONS (18)
  - Hospitalisation [Recovered/Resolved]
  - Disability [Not Recovered/Not Resolved]
  - Near death experience [Recovered/Resolved]
  - Pain [Unknown]
  - Gait disturbance [Unknown]
  - Hypoaesthesia [Unknown]
  - Paraesthesia [Unknown]
  - Dysphagia [Unknown]
  - Neuralgia [Unknown]
  - Headache [Unknown]
  - Hypersensitivity [Unknown]
  - Quality of life decreased [Unknown]
  - Inflammation [Unknown]
  - Neuropathy peripheral [Unknown]
  - Visual impairment [Unknown]
  - Wheelchair user [Unknown]
  - Treatment noncompliance [Unknown]
  - Gait inability [Unknown]

NARRATIVE: CASE EVENT DATE: 20210420
